FAERS Safety Report 6157753-4 (Version None)
Quarter: 2009Q2

REPORT INFORMATION
  Report Type: 
  Country: None (occurrence: None)
  Receive Date: 20090416
  Receipt Date: 20090406
  Transmission Date: 20091009
  Serious: Yes (Death, Hospitalization)
  Sender: FDA-Public Use
  Company Number: US-MERCK-0904USA01959

PATIENT
  Sex: Female
  Weight: 80 kg

DRUGS (3)
  1. HYDRODIURIL [Suspect]
     Route: 048
  2. MORPHINE [Suspect]
     Route: 065
  3. VIOXX [Suspect]
     Route: 048

REACTIONS (7)
  - BLOOD CREATININE ABNORMAL [None]
  - BLOOD POTASSIUM DECREASED [None]
  - HYPERTENSION [None]
  - PULMONARY EMBOLISM [None]
  - RENAL FAILURE ACUTE [None]
  - RESPIRATORY FAILURE [None]
  - RHEUMATOID ARTHRITIS [None]
